FAERS Safety Report 12086176 (Version 4)
Quarter: 2016Q1

REPORT INFORMATION
  Report Type: Report from Study
  Country: US (occurrence: US)
  Receive Date: 20160217
  Receipt Date: 20160330
  Transmission Date: 20160526
  Serious: Yes (Other)
  Sender: FDA-Public Use
  Company Number: US-GILEAD-2016-0198218

PATIENT
  Age: 64 Year
  Sex: Female
  Weight: 70.29 kg

DRUGS (8)
  1. VALSARTAN + HIDROCLOROTIAZIDA [Concomitant]
     Active Substance: HYDROCHLOROTHIAZIDE\VALSARTAN
  2. VSL 3 [Concomitant]
  3. XANAX [Concomitant]
     Active Substance: ALPRAZOLAM
  4. PLAQUENIL [Concomitant]
     Active Substance: HYDROXYCHLOROQUINE SULFATE
  5. DOXAZOSIN [Concomitant]
     Active Substance: DOXAZOSIN\DOXAZOSIN MESYLATE
  6. LEDIPASVIR/SOFOSBUVIR [Suspect]
     Active Substance: LEDIPASVIR\SOFOSBUVIR
     Indication: HEPATITIS C
     Dosage: 1 DF, QD
     Route: 048
     Dates: start: 20160129
  7. DILTIAZEM [Concomitant]
     Active Substance: DILTIAZEM
  8. MINOXIDIL. [Concomitant]
     Active Substance: MINOXIDIL

REACTIONS (5)
  - Fatigue [Unknown]
  - Headache [Unknown]
  - Rheumatoid arthritis [Recovering/Resolving]
  - Pain [Unknown]
  - Gout [Recovered/Resolved]

NARRATIVE: CASE EVENT DATE: 201602
